FAERS Safety Report 25649383 (Version 1)
Quarter: 2025Q3

REPORT INFORMATION
  Report Type: Spontaneous
  Country: US (occurrence: US)
  Receive Date: 20250806
  Receipt Date: 20250806
  Transmission Date: 20251021
  Serious: No
  Sender: TEVA
  Company Number: US-TEVA-VS-3354859

PATIENT
  Age: 29 Year
  Sex: Female

DRUGS (8)
  1. ARMODAFINIL [Suspect]
     Active Substance: ARMODAFINIL
     Indication: Product used for unknown indication
     Route: 065
     Dates: start: 202504, end: 2025
  2. LUMRYZ [Suspect]
     Active Substance: SODIUM OXYBATE
     Indication: Narcolepsy
     Dosage: 6 G, ONCE NIGHTLY, ORAL USE
     Route: 048
     Dates: start: 202506
  3. LUMRYZ [Suspect]
     Active Substance: SODIUM OXYBATE
     Indication: Narcolepsy
     Dosage: 7.5 G, ONCE NIGHTLY, ORAL USE
     Route: 048
     Dates: start: 2025, end: 2025
  4. LUMRYZ [Suspect]
     Active Substance: SODIUM OXYBATE
     Indication: Narcolepsy
     Dosage: 7.5 G, ONCE NIGHTLY, ORAL USE
     Route: 048
     Dates: start: 2025, end: 202506
  5. LUMRYZ [Suspect]
     Active Substance: SODIUM OXYBATE
     Indication: Narcolepsy
     Dosage: 4.5 G, ONCE NIGHTLY, ORAL USE
     Route: 048
     Dates: start: 202504, end: 202505
  6. SUNOSI (SOLRIAMFETOL HYDROCHLORIDE) [Concomitant]
     Indication: Product used for unknown indication
     Route: 065
  7. DULOXETINE [Concomitant]
     Active Substance: DULOXETINE
     Indication: Product used for unknown indication
     Route: 065
  8. LILETTA (LEVONORGESTREL) [Concomitant]
     Indication: Product used for unknown indication
     Route: 065

REACTIONS (13)
  - Diarrhoea [Recovering/Resolving]
  - Middle insomnia [Unknown]
  - Disorientation [Unknown]
  - Retching [Unknown]
  - Gastrointestinal disorder [Unknown]
  - Abdominal discomfort [Unknown]
  - Feeling jittery [Unknown]
  - Vomiting [Unknown]
  - Frequent bowel movements [Not Recovered/Not Resolved]
  - Nocturia [Unknown]
  - Nausea [Unknown]
  - Somnolence [Unknown]
  - Arthralgia [Unknown]

NARRATIVE: CASE EVENT DATE: 20250504
